FAERS Safety Report 7589455-1 (Version None)
Quarter: 2011Q3

REPORT INFORMATION
  Report Type: 
  Country: None (occurrence: None)
  Receive Date: 20110705
  Receipt Date: 20110629
  Transmission Date: 20111222
  Serious: Yes (Hospitalization)
  Sender: FDA-Public Use
  Company Number: JP-SANOFI-AVENTIS-2011SA011426

PATIENT
  Age: 58 Year
  Sex: Male
  Weight: 47.8 kg

DRUGS (11)
  1. ASPIRIN [Concomitant]
     Indication: ACUTE MYOCARDIAL INFARCTION
     Route: 048
     Dates: start: 20101230, end: 20110207
  2. ATORVASTATIN [Suspect]
     Indication: DYSLIPIDAEMIA
     Route: 048
     Dates: start: 20110105, end: 20110210
  3. PLATELETS [Concomitant]
     Indication: CARDIOPULMONARY BYPASS
     Route: 065
     Dates: start: 20101231
  4. DAIKENTYUTO [Concomitant]
     Indication: CONSTIPATION
     Route: 048
     Dates: start: 20110107, end: 20110107
  5. PROTECADIN [Concomitant]
     Route: 048
     Dates: start: 20110122
  6. PLAVIX [Suspect]
     Indication: ACUTE MYOCARDIAL INFARCTION
     Route: 048
     Dates: start: 20101230, end: 20110210
  7. LANSOPRAZOLE [Concomitant]
     Route: 048
     Dates: start: 20110101, end: 20110120
  8. ASPIRIN [Concomitant]
     Route: 048
     Dates: start: 20110217
  9. URSO 250 [Concomitant]
     Indication: CHOLECYSTITIS
     Route: 048
     Dates: start: 20110107, end: 20110107
  10. CARVEDILOL [Concomitant]
     Indication: CARDIAC FAILURE CHRONIC
     Route: 048
     Dates: start: 20110122
  11. BLOOD TRANSFUSION, AUXILIARY PRODUCTS [Concomitant]
     Indication: CARDIOPULMONARY BYPASS
     Dates: start: 20101231

REACTIONS (4)
  - PRURITUS [None]
  - DRUG ERUPTION [None]
  - LIVER DISORDER [None]
  - EOSINOPHIL COUNT INCREASED [None]
